FAERS Safety Report 9398358 (Version 1)
Quarter: 2013Q3

REPORT INFORMATION
  Report Type: Spontaneous
  Country: US (occurrence: US)
  Receive Date: 20130712
  Receipt Date: 20130712
  Transmission Date: 20140515
  Serious: No
  Sender: FDA-Public Use
  Company Number: US-GLAXOSMITHKLINE-A1008219A

PATIENT
  Age: 68 Year
  Sex: Female

DRUGS (7)
  1. FLOVENT [Suspect]
     Indication: PRODUCT USED FOR UNKNOWN INDICATION
     Dosage: 2PUFF TWICE PER DAY
     Route: 055
     Dates: start: 20091103
  2. OXYBUTYNIN [Concomitant]
  3. SIMVASTATIN [Concomitant]
  4. METFORMIN [Concomitant]
  5. OMEPRAZOLE [Concomitant]
  6. LISINOPRIL [Concomitant]
  7. UNKNOWN FLU MEDICATION [Concomitant]

REACTIONS (2)
  - Drug ineffective [Not Recovered/Not Resolved]
  - Product quality issue [Unknown]
